FAERS Safety Report 19862880 (Version 3)
Quarter: 2021Q4

REPORT INFORMATION
  Report Type: Report from Study
  Country: FR (occurrence: FR)
  Receive Date: 20210921
  Receipt Date: 20211129
  Transmission Date: 20220303
  Serious: Yes (Hospitalization, Other)
  Sender: FDA-Public Use
  Company Number: FR-ROCHE-2786928

PATIENT
  Age: 61 Year
  Sex: Male
  Weight: 78 kg

DRUGS (16)
  1. CAPECITABINE [Suspect]
     Active Substance: CAPECITABINE
     Indication: Colorectal cancer metastatic
     Dosage: UNK (DATE OF LAST DOSE OF CAPECITABINE: 18/FEB/2021)
     Route: 048
     Dates: start: 20201214, end: 20210218
  2. CAPECITABINE [Suspect]
     Active Substance: CAPECITABINE
     Dosage: 5200 MILLIGRAM (DATE OF LAST DOSE OF CAPECITABINE: 18/FEB/2021)
     Route: 048
     Dates: start: 20201214
  3. OXALIPLATIN [Suspect]
     Active Substance: OXALIPLATIN
     Indication: Colorectal cancer metastatic
     Dosage: 225 MILLIGRAM (DATE OF LAST DOSE OF OXALIPLATIN: 18/FEB/2021)
     Route: 041
     Dates: start: 20201214, end: 20210218
  4. OXALIPLATIN [Suspect]
     Active Substance: OXALIPLATIN
     Dosage: 205 MILLIGRAM (DATE OF LAST DOSE OF OXALIPLATIN: 18/FEB/2021)
     Route: 041
     Dates: start: 20201214
  5. OXALIPLATIN [Suspect]
     Active Substance: OXALIPLATIN
     Dosage: 205 MILLIGRAM (DATE OF LAST DOSE OF OXALIPLATIN: 18/FEB/2021)
     Route: 041
     Dates: start: 20210413
  6. OXALIPLATIN [Suspect]
     Active Substance: OXALIPLATIN
     Dosage: 205 MILLIGRAM (DATE OF LAST DOSE OF OXALIPLATIN: 18/FEB/2021)
     Route: 041
     Dates: start: 20210218
  7. ATEZOLIZUMAB [Suspect]
     Active Substance: ATEZOLIZUMAB
     Indication: Colorectal cancer metastatic
     Dosage: 1200 MILLIGRAM (DATE OF LAST DOSE ADMINISTERED : 18/FEB/2021)
     Route: 042
     Dates: start: 20201214, end: 20210218
  8. ATEZOLIZUMAB [Suspect]
     Active Substance: ATEZOLIZUMAB
     Dosage: MOST RECENT DOSE PRIOR TO EVENT FEVER ON 13/APR/2021
     Route: 041
     Dates: start: 20210218
  9. BEVACIZUMAB [Suspect]
     Active Substance: BEVACIZUMAB
     Indication: Colorectal cancer metastatic
     Dosage: 587 MILLIGRAM (DATE OF LAST DOSE ADMINISTRERED: 18/FEB/2021)
     Route: 042
     Dates: start: 20210218, end: 20210218
  10. BEVACIZUMAB [Suspect]
     Active Substance: BEVACIZUMAB
     Dosage: 537 MILLIGRAM DATE OF LAST DOSE ADMINISTRERED: 18/FEB/2021 ON 13/APR/2021 RECEIVED MOST RECENT
     Route: 041
     Dates: start: 20210218
  11. YTTRIUM CHLORIDE Y-90 [Suspect]
     Active Substance: YTTRIUM CHLORIDE Y-90
     Indication: Colorectal cancer metastatic
     Dosage: UNK (DATE OF LAST DOSE OF YTTRIUM (90 Y): 28/JAN/2021)
     Route: 065
     Dates: start: 20210128
  12. ACETAMINOPHEN [Concomitant]
     Active Substance: ACETAMINOPHEN
     Indication: Pain
     Dosage: 6 G/DAY
     Dates: start: 20210301, end: 20210303
  13. ACETAMINOPHEN [Concomitant]
     Active Substance: ACETAMINOPHEN
     Dosage: 6 G/DAY
     Dates: start: 20210225, end: 20210302
  14. KARDEGIC [Concomitant]
     Active Substance: ASPIRIN DL-LYSINE
     Dosage: 75 MILLIGRAM
  15. COVERAM [Concomitant]
     Active Substance: AMLODIPINE\PERINDOPRIL
     Indication: Hypertension
     Dosage: 10 MILLIGRAM
  16. METFORMIN [Concomitant]
     Active Substance: METFORMIN HYDROCHLORIDE
     Indication: Type 2 diabetes mellitus
     Dosage: 100 MILLIGRAM

REACTIONS (4)
  - Prostatitis [Recovered/Resolved]
  - Abdominal pain [Recovered/Resolved]
  - Pyrexia [Recovering/Resolving]
  - Cholangitis [Recovered/Resolved]

NARRATIVE: CASE EVENT DATE: 20210305
